FAERS Safety Report 6026351-5 (Version None)
Quarter: 2008Q4

REPORT INFORMATION
  Report Type: 
  Country: None (occurrence: None)
  Receive Date: 20081222
  Receipt Date: 20080902
  Transmission Date: 20090506
  Serious: No
  Sender: FDA-Public Use
  Company Number: US-WYE-H05359208

PATIENT
  Age: 40 Year
  Sex: Female

DRUGS (4)
  1. PRISTIQ [Suspect]
     Indication: DEPRESSION
     Dosage: 50 MG 1X PER 2 DAY, ORAL ; 50 MG 1X PER 1 DAY
     Route: 048
     Dates: start: 20080724, end: 20080731
  2. PRISTIQ [Suspect]
     Indication: DEPRESSION
     Dosage: 50 MG 1X PER 2 DAY, ORAL ; 50 MG 1X PER 1 DAY
     Route: 048
     Dates: start: 20080101
  3. SUBOXONE [Concomitant]
  4. IBUPROFEN TABLETS [Concomitant]

REACTIONS (3)
  - OEDEMA PERIPHERAL [None]
  - PERIPHERAL COLDNESS [None]
  - VISION BLURRED [None]
